FAERS Safety Report 24345770 (Version 1)
Quarter: 2024Q3

REPORT INFORMATION
  Report Type: Spontaneous
  Country: US (occurrence: US)
  Receive Date: 20240920
  Receipt Date: 20240920
  Transmission Date: 20241017
  Serious: No
  Sender: VIVUS
  Company Number: US-VIVUS, Inc.-2024V1000426

PATIENT
  Age: 29 Year
  Sex: Female
  Weight: 156.63 kg

DRUGS (4)
  1. QSYMIA [Suspect]
     Active Substance: PHENTERMINE HYDROCHLORIDE\TOPIRAMATE
     Indication: Weight decreased
     Route: 048
     Dates: start: 202405, end: 20240609
  2. QSYMIA [Suspect]
     Active Substance: PHENTERMINE HYDROCHLORIDE\TOPIRAMATE
     Indication: Product used for unknown indication
     Route: 048
     Dates: start: 202312
  3. QSYMIA [Suspect]
     Active Substance: PHENTERMINE HYDROCHLORIDE\TOPIRAMATE
     Indication: Product used for unknown indication
     Route: 048
     Dates: start: 202303
  4. QSYMIA [Suspect]
     Active Substance: PHENTERMINE HYDROCHLORIDE\TOPIRAMATE
     Route: 048
     Dates: start: 202403, end: 202405

REACTIONS (6)
  - Hypertension [Not Recovered/Not Resolved]
  - COVID-19 [Recovered/Resolved]
  - Migraine [Not Recovered/Not Resolved]
  - Dizziness [Unknown]
  - Vision blurred [Not Recovered/Not Resolved]
  - Incorrect product administration duration [Recovered/Resolved]

NARRATIVE: CASE EVENT DATE: 20230301
